FAERS Safety Report 8391884-3 (Version None)
Quarter: 2012Q2

REPORT INFORMATION
  Report Type: 
  Country: None (occurrence: None)
  Receive Date: 20120529
  Receipt Date: 20120518
  Transmission Date: 20120825
  Serious: Yes (Other)
  Sender: FDA-Public Use
  Company Number: BR-GLAXOSMITHKLINE-A0978917A

PATIENT
  Sex: Female
  Weight: 74 kg

DRUGS (2)
  1. CEFUROXIME [Suspect]
     Indication: SURGERY
     Dosage: 500MG TWICE PER DAY
     Dates: start: 20120515
  2. ACETAMINOPHEN W/ CODEINE [Suspect]
     Indication: PRODUCT USED FOR UNKNOWN INDICATION
     Dosage: 30MG UNKNOWN
     Dates: start: 20120518, end: 20120518

REACTIONS (2)
  - VOMITING [None]
  - SYNCOPE [None]
